FAERS Safety Report 4865416-8 (Version None)
Quarter: 2005Q4

REPORT INFORMATION
  Report Type: 
  Country: None (occurrence: None)
  Receive Date: 20051223
  Receipt Date: 20051215
  Transmission Date: 20060501
  Serious: Yes (Other)
  Sender: FDA-Public Use
  Company Number: FI-AVENTIS-200521111GDDC

PATIENT
  Age: 67 Year
  Sex: Female

DRUGS (5)
  1. AMARYL [Suspect]
     Indication: DIABETES MELLITUS NON-INSULIN-DEPENDENT
     Route: 048
     Dates: start: 20050601, end: 20050601
  2. AMARYL [Suspect]
     Route: 048
     Dates: start: 20050601, end: 20050601
  3. AMARYL [Suspect]
     Route: 048
     Dates: start: 20050830, end: 20050830
  4. THYROXINE [Concomitant]
     Route: 048
  5. HORMONES AND RELATED AGENTS [Concomitant]
     Indication: HORMONE REPLACEMENT THERAPY

REACTIONS (3)
  - CONVULSION [None]
  - DIZZINESS [None]
  - TREATMENT NONCOMPLIANCE [None]
